FAERS Safety Report 5089551-7 (Version None)
Quarter: 2006Q3

REPORT INFORMATION
  Report Type: 
  Country: None (occurrence: None)
  Receive Date: 20060822
  Receipt Date: 20060809
  Transmission Date: 20061208
  Serious: Yes (Other)
  Sender: FDA-Public Use
  Company Number: 2006097413

PATIENT
  Age: 31 Year
  Sex: Female
  Weight: 54.4316 kg

DRUGS (3)
  1. ALDACTONE [Suspect]
     Indication: ILL-DEFINED DISORDER
     Dosage: 100 MG (100 MG,1 IN 1 D)
     Dates: start: 19960101
  2. COZAAR [Suspect]
     Indication: ILL-DEFINED DISORDER
  3. AMBIEN [Concomitant]

REACTIONS (16)
  - ABDOMINAL PAIN [None]
  - ABDOMINAL PAIN UPPER [None]
  - BLOOD AMYLASE INCREASED [None]
  - CONSTIPATION [None]
  - DEPRESSION [None]
  - DIARRHOEA [None]
  - FEELING ABNORMAL [None]
  - GASTRIC ULCER [None]
  - GASTROOESOPHAGEAL REFLUX DISEASE [None]
  - HIATUS HERNIA [None]
  - ILL-DEFINED DISORDER [None]
  - LIPASE INCREASED [None]
  - MUSCLE TIGHTNESS [None]
  - NAUSEA [None]
  - PAIN [None]
  - VOMITING [None]
